FAERS Safety Report 26052601 (Version 1)
Quarter: 2025Q4

REPORT INFORMATION
  Report Type: Report from Study
  Country: US (occurrence: US)
  Receive Date: 20251117
  Receipt Date: 20251117
  Transmission Date: 20260118
  Serious: Yes (Other)
  Sender: NOVARTIS
  Company Number: US-002147023-NVSC2025US176041

PATIENT
  Age: 55 Year
  Sex: Female
  Weight: 73.94 kg

DRUGS (1)
  1. RHAPSIDO [Suspect]
     Active Substance: REMIBRUTINIB
     Indication: Chronic spontaneous urticaria
     Dosage: 25 MG, BID
     Route: 048
     Dates: start: 20251103, end: 20251110

REACTIONS (4)
  - Headache [Recovered/Resolved]
  - Rhinorrhoea [Recovered/Resolved]
  - Dark circles under eyes [Unknown]
  - Skin mass [Recovering/Resolving]

NARRATIVE: CASE EVENT DATE: 20251104
